FAERS Safety Report 6870503-9 (Version None)
Quarter: 2010Q3

REPORT INFORMATION
  Report Type: 
  Country: None (occurrence: None)
  Receive Date: 20100723
  Receipt Date: 20100715
  Transmission Date: 20110219
  Serious: No
  Sender: FDA-Public Use
  Company Number: US-BIOGENIDEC-2010BI023958

PATIENT
  Age: 51 Year
  Sex: Female

DRUGS (2)
  1. AVONEX [Suspect]
     Indication: MULTIPLE SCLEROSIS
     Route: 030
  2. AVONEX [Suspect]
     Route: 030

REACTIONS (9)
  - ABDOMINAL DISTENSION [None]
  - ANKLE FRACTURE [None]
  - FOOT FRACTURE [None]
  - HYPERTENSION [None]
  - JOINT SPRAIN [None]
  - LOWER EXTREMITY MASS [None]
  - LUNG NEOPLASM [None]
  - OSTEOPOROSIS [None]
  - PLEURAL FIBROSIS [None]
